FAERS Safety Report 15301965 (Version 1)
Quarter: 2018Q4

REPORT INFORMATION
  Report Type: Spontaneous
  Country: US (occurrence: US)
  Receive Date: 20180821
  Receipt Date: 20180821
  Transmission Date: 20190204
  Serious: No
  Sender: FDA-Public Use
  Company Number: US-SA-2018SA223105

PATIENT
  Age: 62 Year
  Sex: Female

DRUGS (1)
  1. ACT RESTORING ANTICAVITY FLUORIDE COOL MINT [Suspect]
     Active Substance: SODIUM FLUORIDE

REACTIONS (1)
  - Thermal burn [Unknown]
